FAERS Safety Report 8141020-3 (Version None)
Quarter: 2012Q1

REPORT INFORMATION
  Report Type: 
  Country: None (occurrence: None)
  Receive Date: 20120216
  Receipt Date: 20120206
  Transmission Date: 20120608
  Serious: Yes (Hospitalization)
  Sender: FDA-Public Use
  Company Number: US-ASTELLAS-2012US001788

PATIENT
  Sex: Male

DRUGS (1)
  1. PROGRAF [Suspect]
     Indication: LIVER TRANSPLANT
     Dosage: 8 MG, BID
     Route: 065
     Dates: start: 20110622

REACTIONS (3)
  - ABDOMINAL PAIN UPPER [None]
  - SPLEEN DISORDER [None]
  - BLOOD POTASSIUM INCREASED [None]
